FAERS Safety Report 19404288 (Version 1)
Quarter: 2021Q2

REPORT INFORMATION
  Report Type: Spontaneous
  Country: US (occurrence: US)
  Receive Date: 20210611
  Receipt Date: 20210611
  Transmission Date: 20210717
  Serious: No
  Sender: FDA-Public Use
  Company Number: None

PATIENT
  Age: 38 Year
  Sex: Female

DRUGS (1)
  1. CBD EDIBLE CINNAMON COOKIE BAR 475MG [Suspect]
     Active Substance: CANNABIDIOL\HERBALS

REACTIONS (4)
  - Tremor [None]
  - Nausea [None]
  - Anxiety [None]
  - Malaise [None]

NARRATIVE: CASE EVENT DATE: 20201221
